FAERS Safety Report 6148006-9 (Version None)
Quarter: 2009Q2

REPORT INFORMATION
  Report Type: 
  Country: None (occurrence: None)
  Receive Date: 20090408
  Receipt Date: 20090330
  Transmission Date: 20091009
  Serious: Yes (Other)
  Sender: FDA-Public Use
  Company Number: FR-ROCHE-625484

PATIENT

DRUGS (3)
  1. MYCOPHENOLATE MOFETIL [Suspect]
     Route: 065
  2. RITUXIMAB [Suspect]
     Indication: RENAL TRANSPLANT
     Route: 065
  3. CSA [Suspect]
     Route: 065

REACTIONS (3)
  - BK VIRUS INFECTION [None]
  - JC VIRUS INFECTION [None]
  - POLYOMAVIRUS-ASSOCIATED NEPHROPATHY [None]
